FAERS Safety Report 20177456 (Version 1)
Quarter: 2021Q4

REPORT INFORMATION
  Report Type: Spontaneous
  Country: US (occurrence: None)
  Receive Date: 20211212
  Receipt Date: 20211212
  Transmission Date: 20220303
  Serious: Yes (Other)
  Sender: FDA-Public Use
  Company Number: None

PATIENT
  Age: 38 Year
  Sex: Male
  Weight: 114.75 kg

DRUGS (13)
  1. .DELTA.8-TETRAHYDROCANNABINOL\DEVICE\HERBALS [Suspect]
     Active Substance: .DELTA.8-TETRAHYDROCANNABINOL\DEVICE\HERBALS
     Indication: Substance use
     Dosage: FREQUENCY : AT BEDTIME;?
     Route: 055
     Dates: start: 20211129, end: 20211207
  2. SYMBICORT [Concomitant]
     Active Substance: BUDESONIDE\FORMOTEROL FUMARATE DIHYDRATE
  3. PROZAC [Concomitant]
     Active Substance: FLUOXETINE HYDROCHLORIDE
  4. KLONOPIN [Concomitant]
     Active Substance: CLONAZEPAM
  5. L-MTHYLFOLATE [Concomitant]
  6. ADDERALL XR [Concomitant]
     Active Substance: AMPHETAMINE ASPARTATE\AMPHETAMINE SULFATE\DEXTROAMPHETAMINE SACCHARATE\DEXTROAMPHETAMINE SULFATE
  7. SEROQUEL [Concomitant]
     Active Substance: QUETIAPINE FUMARATE
  8. TRAMADOL [Concomitant]
     Active Substance: TRAMADOL
  9. MELATONIN [Concomitant]
     Active Substance: MELATONIN
  10. VITAMIN D3 [Concomitant]
     Active Substance: CHOLECALCIFEROL
  11. FLONASE [Concomitant]
     Active Substance: FLUTICASONE PROPIONATE
  12. VITAMIN C [Concomitant]
     Active Substance: ASCORBIC ACID
  13. ENURE PROTEIN SHAKES [Concomitant]

REACTIONS (4)
  - Suicidal ideation [None]
  - Pyrexia [None]
  - Nausea [None]
  - Pain [None]

NARRATIVE: CASE EVENT DATE: 20211208
